FAERS Safety Report 24364704 (Version 4)
Quarter: 2025Q1

REPORT INFORMATION
  Report Type: Spontaneous
  Country: JP (occurrence: JP)
  Receive Date: 20240926
  Receipt Date: 20250210
  Transmission Date: 20250409
  Serious: Yes (Hospitalization, Disabling)
  Sender: NOVO NORDISK
  Company Number: JP-NOVOPROD-1285041

PATIENT
  Age: 76 Year
  Sex: Male
  Weight: 65.7 kg

DRUGS (4)
  1. RYBELSUS [Suspect]
     Active Substance: SEMAGLUTIDE
     Dosage: 3 MG, BID
     Route: 048
     Dates: start: 20220413, end: 20240710
  2. RYBELSUS [Suspect]
     Active Substance: SEMAGLUTIDE
     Indication: Type 2 diabetes mellitus
     Route: 048
     Dates: start: 20220209
  3. TELMISARTAN [Concomitant]
     Active Substance: TELMISARTAN
     Indication: Hypertension
     Dosage: 40 MG, QD
     Route: 048
  4. CLOPIDOGREL [Concomitant]
     Active Substance: CLOPIDOGREL BISULFATE
     Indication: Carotid artery stenosis
     Dosage: 75 MG, QD
     Route: 048

REACTIONS (2)
  - Pulmonary toxicity [Not Recovered/Not Resolved]
  - Inappropriate schedule of product administration [Unknown]

NARRATIVE: CASE EVENT DATE: 20220413
